FAERS Safety Report 7077082-4 (Version None)
Quarter: 2010Q4

REPORT INFORMATION
  Report Type: 
  Country: None (occurrence: None)
  Receive Date: 20101101
  Receipt Date: 20101020
  Transmission Date: 20110411
  Serious: Yes (Death)
  Sender: FDA-Public Use
  Company Number: US-ROCHE-735302

PATIENT
  Sex: Male

DRUGS (8)
  1. PEGASYS [Suspect]
     Route: 065
     Dates: start: 20031201
  2. RIBAVARIN [Suspect]
     Route: 065
     Dates: start: 20011201, end: 20020701
  3. RIBAVARIN [Suspect]
     Route: 065
     Dates: start: 20031201
  4. INTRON A [Suspect]
     Route: 065
     Dates: start: 20011201, end: 20020701
  5. PROCRIT [Suspect]
     Indication: ANAEMIA
     Dosage: OTHER INDICATIONS: NEUTROPENIA, THROMBOCYTOPENIA
     Route: 065
     Dates: start: 20011201
  6. PROCRIT [Suspect]
     Route: 065
     Dates: start: 20020201
  7. PROCRIT [Suspect]
     Route: 065
     Dates: start: 20031219
  8. BUPROPION HCL [Suspect]
     Route: 065

REACTIONS (3)
  - LARGE INTESTINE PERFORATION [None]
  - PERITONEAL ADHESIONS [None]
  - PERITONITIS [None]
